FAERS Safety Report 6161150-5 (Version None)
Quarter: 2009Q2

REPORT INFORMATION
  Report Type: 
  Country: None (occurrence: None)
  Receive Date: 20090417
  Receipt Date: 20090417
  Transmission Date: 20091009
  Serious: Yes (Hospitalization, Other)
  Sender: FDA-Public Use
  Company Number: None

PATIENT
  Sex: Female
  Weight: 42.1845 kg

DRUGS (2)
  1. BOTOX [Suspect]
     Indication: DYSKINESIA OESOPHAGEAL
     Dates: start: 20090109
  2. BOTOX [Suspect]
     Indication: PNEUMONIA ASPIRATION
     Dates: start: 20090109

REACTIONS (9)
  - ARTHRALGIA [None]
  - CHEST PAIN [None]
  - INTESTINAL PERFORATION [None]
  - MYALGIA [None]
  - OROPHARYNGEAL PAIN [None]
  - PHARYNGEAL ERYTHEMA [None]
  - PYREXIA [None]
  - RASH GENERALISED [None]
  - SKIN BURNING SENSATION [None]
